FAERS Safety Report 9240425 (Version 1)
Quarter: 2013Q2

REPORT INFORMATION
  Report Type: Spontaneous
  Country: CA (occurrence: None)
  Receive Date: 20130417
  Receipt Date: 20130417
  Transmission Date: 20140414
  Serious: Yes (Other)
  Sender: FDA-Public Use
  Company Number: 2013AP004460

PATIENT
  Sex: 0

DRUGS (2)
  1. APO-LEVETIRACETAM [Suspect]
     Dates: start: 20130209
  2. LEVETIRACETAM (LEVETIRACETAM) [Concomitant]

REACTIONS (9)
  - Hypersensitivity [None]
  - Agitation [None]
  - Urine output decreased [None]
  - Skin burning sensation [None]
  - Blister [None]
  - Local swelling [None]
  - Local swelling [None]
  - Joint swelling [None]
  - Polydipsia [None]
